FAERS Safety Report 20969590 (Version 1)
Quarter: 2022Q2

REPORT INFORMATION
  Report Type: Spontaneous
  Country: PL (occurrence: PL)
  Receive Date: 20220616
  Receipt Date: 20220616
  Transmission Date: 20220720
  Serious: Yes (Other)
  Sender: FDA-Public Use
  Company Number: PL-AMGEN-POLSP2022098915

PATIENT
  Age: 66 Year
  Sex: Male

DRUGS (5)
  1. VECTIBIX [Suspect]
     Active Substance: PANITUMUMAB
     Indication: Rectal cancer
     Dosage: 6 MILLIGRAM/KILOGRAM, Q2WK
     Route: 042
     Dates: start: 20210430
  2. LEUCOVORIN CALCIUM [Suspect]
     Active Substance: LEUCOVORIN CALCIUM
     Indication: Rectal cancer
     Dosage: UNK
     Route: 042
     Dates: start: 20210430
  3. FLUOROURACIL [Suspect]
     Active Substance: FLUOROURACIL
     Indication: Rectal cancer
     Dosage: 400 MILLIGRAM/SQ. METER, QD
     Route: 042
     Dates: start: 20210430
  4. FLUOROURACIL [Suspect]
     Active Substance: FLUOROURACIL
     Dosage: 600 MILLIGRAM/SQ. METER, QD
     Route: 042
     Dates: start: 20210430
  5. IRINOTECAN [Suspect]
     Active Substance: IRINOTECAN
     Indication: Rectal cancer
     Dosage: 180 MILLIGRAM/SQ. METER
     Route: 042
     Dates: start: 20210430

REACTIONS (2)
  - Hepatic lesion [Unknown]
  - Jaundice [Unknown]

NARRATIVE: CASE EVENT DATE: 20220301
